FAERS Safety Report 10169260 (Version 1)
Quarter: 2014Q2

REPORT INFORMATION
  Report Type: Spontaneous
  Country: US (occurrence: US)
  Receive Date: 20140513
  Receipt Date: 20140513
  Transmission Date: 20141212
  Serious: Yes (Hospitalization)
  Sender: FDA-Public Use
  Company Number: US-PFIZER INC-2014128941

PATIENT
  Age: 75 Year
  Sex: Female
  Weight: 104.31 kg

DRUGS (1)
  1. REVATIO [Suspect]
     Indication: PULMONARY HYPERTENSION
     Dosage: 20 MG, 2X/DAY
     Route: 048

REACTIONS (2)
  - General physical health deterioration [Unknown]
  - Laboratory test abnormal [Unknown]
